FAERS Safety Report 11025910 (Version 1)
Quarter: 2015Q2

REPORT INFORMATION
  Report Type: Spontaneous
  Country: IN (occurrence: IN)
  Receive Date: 20150414
  Receipt Date: 20150414
  Transmission Date: 20150821
  Serious: Yes (Death, Hospitalization)
  Sender: FDA-Public Use
  Company Number: IN-SA-2015SA044715

PATIENT
  Age: 70 Year
  Sex: Female
  Weight: 80 kg

DRUGS (7)
  1. ISONIAZID. [Suspect]
     Active Substance: ISONIAZID
     Indication: TUBERCULOSIS
     Route: 048
  2. CALCIUM [Concomitant]
     Active Substance: CALCIUM
  3. PANTOPRAZOLE [Concomitant]
     Active Substance: PANTOPRAZOLE SODIUM
  4. RIFAMPICIN [Suspect]
     Active Substance: RIFAMPIN
     Indication: TUBERCULOSIS
     Route: 048
  5. ETHAMBUTOL [Suspect]
     Active Substance: ETHAMBUTOL HYDROCHLORIDE
     Indication: TUBERCULOSIS
     Route: 048
  6. PYRAZINAMIDE. [Suspect]
     Active Substance: PYRAZINAMIDE
     Indication: TUBERCULOSIS
     Route: 048
  7. TELMISARTAN. [Concomitant]
     Active Substance: TELMISARTAN

REACTIONS (9)
  - Blood pressure decreased [Fatal]
  - Alanine aminotransferase increased [Fatal]
  - Hepatic encephalopathy [Fatal]
  - Heart rate increased [Fatal]
  - Hepatitis fulminant [Fatal]
  - Aspartate aminotransferase increased [Fatal]
  - Shock [Fatal]
  - Blood bilirubin increased [Fatal]
  - Coma [Fatal]
